FAERS Safety Report 5034821-1 (Version None)
Quarter: 2006Q2

REPORT INFORMATION
  Report Type: 
  Country: None (occurrence: None)
  Receive Date: 20060627
  Receipt Date: 20060616
  Transmission Date: 20061013
  Serious: Yes (Other)
  Sender: FDA-Public Use
  Company Number: US-JNJFOC-20060604111

PATIENT
  Sex: Female

DRUGS (3)
  1. REMICADE [Suspect]
     Route: 042
  2. REMICADE [Suspect]
     Indication: CROHN'S DISEASE
     Route: 042
  3. DOXYCYCLINE [Concomitant]
     Indication: ANTIBIOTIC PROPHYLAXIS

REACTIONS (5)
  - BACK PAIN [None]
  - CHEST DISCOMFORT [None]
  - NUCLEAR MAGNETIC RESONANCE IMAGING ABNORMAL [None]
  - PAIN [None]
  - SPINAL DISORDER [None]
